FAERS Safety Report 11926283 (Version 3)
Quarter: 2021Q4

REPORT INFORMATION
  Report Type: Spontaneous
  Country: PL (occurrence: PL)
  Receive Date: 20160119
  Receipt Date: 20211026
  Transmission Date: 20220303
  Serious: Yes (Hospitalization, Other)
  Sender: FDA-Public Use
  Company Number: PL-SHIRE-PL201600477

PATIENT
  Age: 31 Year
  Sex: Male

DRUGS (3)
  1. MESALAMINE [Suspect]
     Active Substance: MESALAMINE
     Indication: Colitis ulcerative
     Dosage: UNK, UNKNOWN
     Route: 048
  2. MESALAMINE [Suspect]
     Active Substance: MESALAMINE
     Indication: Colitis ulcerative
     Dosage: UNK, UNKNOWN
     Route: 054
  3. MESALAMINE [Suspect]
     Active Substance: MESALAMINE
     Dosage: UNK
     Route: 048

REACTIONS (13)
  - Organising pneumonia [Recovered/Resolved]
  - Toxicity to various agents [Recovered/Resolved]
  - Pulmonary toxicity [Recovered/Resolved]
  - Colitis ulcerative [Unknown]
  - Chest X-ray abnormal [Recovering/Resolving]
  - Pyrexia [Recovering/Resolving]
  - White blood cell count increased [Recovering/Resolving]
  - Eosinophil count increased [Recovering/Resolving]
  - C-reactive protein increased [Recovering/Resolving]
  - Cough [Recovering/Resolving]
  - Lung consolidation [Recovering/Resolving]
  - Pleuritic pain [Recovering/Resolving]
  - Red blood cell sedimentation rate increased [Recovering/Resolving]
